FAERS Safety Report 13909933 (Version 6)
Quarter: 2017Q4

REPORT INFORMATION
  Report Type: Spontaneous
  Country: CH (occurrence: CH)
  Receive Date: 20170828
  Receipt Date: 20171215
  Transmission Date: 20180320
  Serious: Yes (Other)
  Sender: FDA-Public Use
  Company Number: CH-SUN PHARMACEUTICAL INDUSTRIES LTD-2017RR-148179

PATIENT
  Sex: Male

DRUGS (8)
  1. SPIRONOLACTONE. [Interacting]
     Active Substance: SPIRONOLACTONE
     Indication: DIURETIC THERAPY
     Dosage: 1.2 MG/KG, DAILY
     Route: 048
  2. DIGOXIN. [Interacting]
     Active Substance: DIGOXIN
     Indication: PRODUCT USED FOR UNKNOWN INDICATION
     Dosage: 3 ?G/KG, DAILY
     Route: 065
  3. CARVEDILOL. [Interacting]
     Active Substance: CARVEDILOL
     Indication: BLOOD PRESSURE INCREASED
  4. MILRINONE [Concomitant]
     Active Substance: MILRINONE
     Indication: PRODUCT USED FOR UNKNOWN INDICATION
     Dosage: 0.5 ?G/KG/MIN
     Route: 065
  5. FUROSEMID [Concomitant]
     Active Substance: FUROSEMIDE
     Indication: DIURETIC THERAPY
     Dosage: 1.6-2.5 MG/KG/DAY
     Route: 048
  6. CARVEDILOL. [Suspect]
     Active Substance: CARVEDILOL
     Indication: SINUS TACHYCARDIA
     Dosage: 0.04 MG/KG, BID
     Route: 065
  7. TEICOPLANIN [Concomitant]
     Active Substance: TEICOPLANIN
     Indication: ANTIBIOTIC THERAPY
     Dosage: UNK
     Route: 065
  8. GENTAMICIN. [Concomitant]
     Active Substance: GENTAMICIN
     Indication: ANTIBIOTIC THERAPY
     Dosage: UNK
     Route: 065

REACTIONS (5)
  - Toxicity to various agents [Recovered/Resolved]
  - Atrioventricular block second degree [Recovered/Resolved]
  - Atrioventricular block first degree [Recovered/Resolved]
  - Arrhythmia [Recovered/Resolved]
  - Drug interaction [Recovered/Resolved]
